FAERS Safety Report 5108858-8 (Version None)
Quarter: 2006Q3

REPORT INFORMATION
  Report Type: 
  Country: None (occurrence: None)
  Receive Date: 20060915
  Receipt Date: 20060915
  Transmission Date: 20061208
  Serious: Yes (Disabling, Other)
  Sender: FDA-Public Use
  Company Number: None

PATIENT
  Sex: Female
  Weight: 97.5234 kg

DRUGS (1)
  1. ZELNORM [Suspect]
     Indication: CONSTIPATION
     Dosage: 6MG  2X DAY  PO
     Route: 048
     Dates: start: 20060908, end: 20060910

REACTIONS (2)
  - COLITIS [None]
  - GASTROINTESTINAL MOTILITY DISORDER [None]
